FAERS Safety Report 5167240-8 (Version None)
Quarter: 2006Q4

REPORT INFORMATION
  Report Type: 
  Country: None (occurrence: None)
  Receive Date: 20061124
  Receipt Date: 20061118
  Transmission Date: 20070319
  Serious: Yes (Other)
  Sender: FDA-Public Use
  Company Number: 2006143776

PATIENT
  Age: 57 Year
  Sex: Male
  Weight: 72.5755 kg

DRUGS (1)
  1. DILANTIN [Suspect]
     Indication: EPILEPSY
     Dosage: SEE IMAGE

REACTIONS (2)
  - ANTIDEPRESSANT DRUG LEVEL DECREASED [None]
  - CONVULSION [None]
